FAERS Safety Report 8348757 (Version 3)
Quarter: 2013Q1

REPORT INFORMATION
  Report Type: Spontaneous
  Country: FR (occurrence: FR)
  Receive Date: 20120123
  Receipt Date: 20130204
  Transmission Date: 20140127
  Serious: Yes (Other)
  Sender: FDA-Public Use
  Company Number: PHHY2012FR004395

PATIENT
  Age: 35 Year
  Sex: Female

DRUGS (3)
  1. ZOMETA [Suspect]
     Dosage: 1 DF, QMO
     Dates: start: 201104
  2. MYOCET [Concomitant]
     Indication: BREAST CANCER
     Dosage: 50 MG, UNK
     Dates: start: 201106, end: 201108
  3. ENDOXAN [Concomitant]
     Route: 042
     Dates: start: 201106, end: 201108

REACTIONS (4)
  - Osteonecrosis of jaw [Recovered/Resolved with Sequelae]
  - Pain in jaw [Not Recovered/Not Resolved]
  - Impaired healing [Unknown]
  - Primary sequestrum [Unknown]
